FAERS Safety Report 8782704 (Version 1)
Quarter: 2012Q4

REPORT INFORMATION
  Report Type: Report from Study
  Country: US (occurrence: US)
  Receive Date: 20120913
  Receipt Date: 20120913
  Transmission Date: 20130627
  Serious: No
  Sender: FDA-Public Use
  Company Number: US-VERTEX PHARMACEUTICAL INC.-AE-2012-010127

PATIENT
  Age: 47 Year
  Sex: Female
  Weight: 67.27 kg

DRUGS (6)
  1. INCIVEK [Suspect]
     Indication: HEPATITIS C
     Route: 048
  2. PEGASYS PROCLICK [Concomitant]
     Indication: HEPATITIS C
     Route: 058
  3. RIBAVIRIN [Concomitant]
     Indication: HEPATITIS C
     Route: 048
  4. LISINOP/HCTZ [Concomitant]
     Route: 048
  5. HYDROXYCHLOR [Concomitant]
     Route: 048
  6. ESTRADIOL [Concomitant]
     Route: 048

REACTIONS (3)
  - Insomnia [Unknown]
  - Injection site reaction [Unknown]
  - Nausea [Unknown]
